FAERS Safety Report 14692430 (Version 5)
Quarter: 2018Q2

REPORT INFORMATION
  Report Type: Spontaneous
  Country: US (occurrence: US)
  Receive Date: 20180329
  Receipt Date: 20180510
  Transmission Date: 20180711
  Serious: No
  Sender: FDA-Public Use
  Company Number: US-PFIZER INC-2018127545

PATIENT
  Age: 86 Year
  Sex: Female
  Weight: 50 kg

DRUGS (4)
  1. DAPTOMYCIN. [Suspect]
     Active Substance: DAPTOMYCIN
     Indication: STAPHYLOCOCCAL INFECTION
     Dosage: 300 MG, ALTERNATE DAY (EVERY 48 HOURS)
     Route: 040
     Dates: start: 20180320, end: 20180325
  2. CEFTAROLINE [Concomitant]
     Active Substance: CEFTAROLINE
     Indication: STAPHYLOCOCCAL INFECTION
  3. DAPTOMYCIN. [Suspect]
     Active Substance: DAPTOMYCIN
     Indication: BACTERAEMIA
  4. CEFTAROLINE [Concomitant]
     Active Substance: CEFTAROLINE
     Indication: BACTERAEMIA
     Dosage: 300 MG, 2X/DAY (EVERY 12 HOURS)
     Route: 042
     Dates: start: 201803

REACTIONS (2)
  - Myalgia [Recovered/Resolved]
  - Chills [Recovered/Resolved]

NARRATIVE: CASE EVENT DATE: 20180322
